FAERS Safety Report 5584928-5 (Version None)
Quarter: 2007Q4

REPORT INFORMATION
  Report Type: 
  Country: None (occurrence: None)
  Receive Date: 20071130
  Receipt Date: 20061016
  Transmission Date: 20080405
  Serious: Yes (Other)
  Sender: FDA-Public Use
  Company Number: WAES 0610USA10667

PATIENT
  Age: 64 Year
  Sex: Female

DRUGS (2)
  1. FOSAMAX [Suspect]
     Indication: OSTEOPOROSIS
     Dosage: 70 MG/WKY/PO
     Route: 048
     Dates: start: 20040101, end: 20060605
  2. PREVACID [Concomitant]

REACTIONS (2)
  - OSTEONECROSIS [None]
  - TOOTH LOSS [None]
